FAERS Safety Report 9858239 (Version 1)
Quarter: 2014Q1

REPORT INFORMATION
  Report Type: Spontaneous
  Country: US (occurrence: None)
  Receive Date: 20140130
  Receipt Date: 20140130
  Transmission Date: 20141002
  Serious: Yes (Other)
  Sender: FDA-Public Use
  Company Number: None

PATIENT
  Age: 56 Year
  Sex: Female

DRUGS (9)
  1. VAGIFEM [Suspect]
     Indication: VULVOVAGINAL DRYNESS
     Dosage: 1 TABLET 2-3 TIMES/WEEK VAGINALLY
     Route: 067
     Dates: start: 20131120, end: 20131202
  2. SYNTHROID [Concomitant]
  3. VAGIFEM [Concomitant]
  4. SUMATRIPTAN NASAL SPRAY [Concomitant]
  5. MULTIVITAMIN [Concomitant]
  6. ESTROVEN [Concomitant]
  7. ESTROVEN PM [Concomitant]
  8. MELATONIN [Concomitant]
  9. COSAMIN ASU [Concomitant]

REACTIONS (17)
  - Abasia [None]
  - Dysstasia [None]
  - Urinary incontinence [None]
  - Fall [None]
  - Pruritus [None]
  - Pruritus [None]
  - Burning sensation [None]
  - Burning sensation [None]
  - Dyspnoea [None]
  - Erythema [None]
  - Hypersensitivity [None]
  - Burning sensation [None]
  - Pruritus [None]
  - Local swelling [None]
  - Loss of consciousness [None]
  - Amnesia [None]
  - Product quality issue [None]
